FAERS Safety Report 5316413-X (Version None)
Quarter: 2007Q2

REPORT INFORMATION
  Report Type: 
  Country: None (occurrence: None)
  Receive Date: 20070504
  Receipt Date: 20070426
  Transmission Date: 20071010
  Serious: Yes (Life-Threatening, Other)
  Sender: FDA-Public Use
  Company Number: HQWYE008528MAR07

PATIENT
  Sex: Male
  Weight: 49 kg

DRUGS (11)
  1. MYLOTARG [Suspect]
     Indication: ACUTE MYELOID LEUKAEMIA
     Route: 041
     Dates: start: 20070201, end: 20070201
  2. CYTARABINE [Concomitant]
     Indication: ACUTE MYELOID LEUKAEMIA
     Dosage: UNKNOWN
     Route: 042
     Dates: start: 20070213, end: 20070215
  3. MEROPEN [Concomitant]
     Route: 042
     Dates: start: 20070130, end: 20070213
  4. AMIKACIN [Concomitant]
     Route: 041
     Dates: start: 20070130, end: 20070213
  5. GASTER [Concomitant]
     Indication: PROPHYLAXIS
     Route: 048
     Dates: start: 20061106, end: 20070214
  6. PREDONINE [Concomitant]
     Route: 048
     Dates: start: 20061215, end: 20070214
  7. URSO [Concomitant]
     Route: 048
     Dates: start: 20061212, end: 20070214
  8. DIFLUCAN [Concomitant]
     Indication: PROPHYLAXIS
     Route: 048
     Dates: start: 20070111, end: 20070114
  9. BAKTAR [Concomitant]
     Indication: PROPHYLAXIS
     Route: 048
     Dates: start: 20061208, end: 20070214
  10. DAUNORUBICIN HCL [Concomitant]
     Indication: ACUTE MYELOID LEUKAEMIA
     Dosage: UNKNOWN
     Route: 042
     Dates: start: 20070213, end: 20070215
  11. VENOGLOBULIN [Concomitant]
     Route: 042
     Dates: start: 20070131, end: 20070202

REACTIONS (7)
  - ANAEMIA [None]
  - BLOOD UREA INCREASED [None]
  - C-REACTIVE PROTEIN INCREASED [None]
  - CONDITION AGGRAVATED [None]
  - PERFORMANCE STATUS DECREASED [None]
  - PNEUMONIA [None]
  - WHITE BLOOD CELL COUNT INCREASED [None]
